FAERS Safety Report 6361340-2 (Version None)
Quarter: 2009Q3

REPORT INFORMATION
  Report Type: 
  Country: None (occurrence: None)
  Receive Date: 20090918
  Receipt Date: 20090911
  Transmission Date: 20100115
  Serious: Yes (Other)
  Sender: FDA-Public Use
  Company Number: B0582476A

PATIENT
  Sex: Female
  Weight: 54 kg

DRUGS (1)
  1. ARIXTRA [Suspect]
     Indication: THROMBOSIS PROPHYLAXIS
     Dosage: 2.5MG PER DAY
     Route: 058
     Dates: start: 20080618, end: 20080622

REACTIONS (3)
  - HAEMORRHAGE SUBCUTANEOUS [None]
  - INFECTION [None]
  - POST PROCEDURAL HAEMORRHAGE [None]
